FAERS Safety Report 6422693-X (Version None)
Quarter: 2009Q4

REPORT INFORMATION
  Report Type: 
  Country: None (occurrence: None)
  Receive Date: 20091102
  Receipt Date: 20091023
  Transmission Date: 20100525
  Serious: Yes (Other)
  Sender: FDA-Public Use
  Company Number: BR-JNJFOC-20091008014

PATIENT
  Age: 8 Year
  Sex: Male
  Weight: 38 kg

DRUGS (2)
  1. CONCERTA [Suspect]
     Dosage: 2 TABLETS AT MORNING
     Route: 048
     Dates: start: 20091001, end: 20091001
  2. CONCERTA [Suspect]
     Indication: ATTENTION DEFICIT/HYPERACTIVITY DISORDER
     Route: 048
     Dates: start: 20091001, end: 20091001

REACTIONS (3)
  - COLD SWEAT [None]
  - DRUG INEFFECTIVE [None]
  - HYPOTENSION [None]
